FAERS Safety Report 10465104 (Version 1)
Quarter: 2014Q3

REPORT INFORMATION
  Report Type: Spontaneous
  Country: CA (occurrence: CA)
  Receive Date: 20140919
  Receipt Date: 20140919
  Transmission Date: 20150326
  Serious: Yes (Death, Hospitalization)
  Sender: FDA-Public Use
  Company Number: CA-MYLANLABS-2014M1004698

PATIENT

DRUGS (2)
  1. MORPHINE [Suspect]
     Active Substance: MORPHINE
     Indication: MUSCULOSKELETAL CHEST PAIN
     Dosage: LONG-ACTING
     Route: 048
  2. HYDROMORPHONE [Suspect]
     Active Substance: HYDROMORPHONE
     Route: 065

REACTIONS (6)
  - Respiratory arrest [Fatal]
  - Renal failure [Unknown]
  - Overdose [Fatal]
  - Circulatory collapse [Fatal]
  - Medication error [Fatal]
  - Pneumonia [Unknown]
